FAERS Safety Report 8428120-5 (Version None)
Quarter: 2012Q2

REPORT INFORMATION
  Report Type: 
  Country: None (occurrence: None)
  Receive Date: 20120611
  Receipt Date: 20120531
  Transmission Date: 20120825
  Serious: Yes (Hospitalization, Other)
  Sender: FDA-Public Use
  Company Number: US-ASTRAZENECA-2011SE68417

PATIENT
  Age: 53 Year
  Sex: Female

DRUGS (3)
  1. COUMADIN [Suspect]
     Route: 065
  2. SYMBICORT [Suspect]
     Dosage: UNKNOWN
     Route: 055
  3. NEXIUM [Suspect]
     Route: 048

REACTIONS (5)
  - CHOKING SENSATION [None]
  - GASTROOESOPHAGEAL REFLUX DISEASE [None]
  - INCORRECT DOSE ADMINISTERED [None]
  - CARDIAC DISORDER [None]
  - INTENTIONAL DRUG MISUSE [None]
